FAERS Safety Report 4890735-9 (Version None)
Quarter: 2006Q1

REPORT INFORMATION
  Report Type: 
  Country: None (occurrence: None)
  Receive Date: 20060125
  Receipt Date: 20040708
  Transmission Date: 20060701
  Serious: Yes (Other)
  Sender: FDA-Public Use
  Company Number: US-BRISTOL-MYERS SQUIBB COMPANY-12638540

PATIENT
  Age: 41 Year
  Sex: Female

DRUGS (5)
  1. STADOL [Suspect]
     Indication: MIGRAINE
     Route: 045
     Dates: start: 19980323, end: 20020501
  2. HYDROCODONE + ACETAMINOPHEN [Concomitant]
  3. CARISOPRODOL [Concomitant]
  4. PROMETHAZINE [Concomitant]
  5. CHLORPROMAZINE [Concomitant]

REACTIONS (1)
  - DEPENDENCE [None]
